FAERS Safety Report 10416400 (Version 1)
Quarter: 2014Q3

REPORT INFORMATION
  Report Type: Spontaneous
  Country: US (occurrence: None)
  Receive Date: 20140827
  Receipt Date: 20140827
  Transmission Date: 20150326
  Serious: No
  Sender: FDA-Public Use
  Company Number: None

PATIENT
  Age: 46 Year
  Sex: Female
  Weight: 55.79 kg

DRUGS (1)
  1. VAGISIL ANTI ITCH ORIGINAL STRENGTH [Suspect]
     Active Substance: BENZOCAINE\RESORCINOL
     Indication: PRURITUS

REACTIONS (4)
  - Burning sensation [None]
  - Erythema [None]
  - Insomnia [None]
  - Pruritus [None]

NARRATIVE: CASE EVENT DATE: 20140629
